FAERS Safety Report 9360433 (Version 1)
Quarter: 2013Q2

REPORT INFORMATION
  Report Type: Spontaneous
  Country: FR (occurrence: FR)
  Receive Date: 20130621
  Receipt Date: 20130621
  Transmission Date: 20140414
  Serious: Yes (Other)
  Sender: FDA-Public Use
  Company Number: FR-009507513-1306FRA007044

PATIENT
  Age: 71 Year
  Sex: Male

DRUGS (2)
  1. TIENAM 500MG/500MG, POUDRE POUR PERFUSION [Suspect]
     Dosage: 4 DF, QD
     Route: 042
     Dates: start: 20121207
  2. MYNOCINE [Suspect]
     Dosage: 3 DF, QD
     Route: 048
     Dates: start: 20121207

REACTIONS (1)
  - Skin hyperpigmentation [Unknown]
